FAERS Safety Report 7860363-1 (Version None)
Quarter: 2011Q4

REPORT INFORMATION
  Report Type: 
  Country: None (occurrence: None)
  Receive Date: 20111027
  Receipt Date: 20111013
  Transmission Date: 20120403
  Serious: Yes (Other)
  Sender: FDA-Public Use
  Company Number: US-ELI_LILLY_AND_COMPANY-US200907001515

PATIENT
  Sex: Female

DRUGS (3)
  1. FORTEO [Suspect]
     Dosage: 20 UG, QD
  2. FORTEO [Suspect]
     Indication: OSTEOPOROSIS
     Dosage: 20 UG, DAILY (1/D)
     Route: 065
     Dates: start: 20090623, end: 20090708
  3. FORTEO [Suspect]
     Dosage: 20 UG, DAILY (1/D)
     Route: 065
     Dates: start: 20101001

REACTIONS (11)
  - FEELING ABNORMAL [None]
  - PAIN IN EXTREMITY [None]
  - HIP FRACTURE [None]
  - DYSSTASIA [None]
  - BALANCE DISORDER [None]
  - MOBILITY DECREASED [None]
  - ARTHRALGIA [None]
  - FALL [None]
  - SLUGGISHNESS [None]
  - DRUG DOSE OMISSION [None]
  - GAIT DISTURBANCE [None]
